FAERS Safety Report 12477381 (Version 4)
Quarter: 2016Q3

REPORT INFORMATION
  Report Type: Report from Study
  Country: KR (occurrence: KR)
  Receive Date: 20160617
  Receipt Date: 20160713
  Transmission Date: 20161109
  Serious: Yes (Hospitalization)
  Sender: FDA-Public Use
  Company Number: PHHO2016KR008646

PATIENT
  Age: 56 Year
  Sex: Female

DRUGS (13)
  1. FEROBA-YOU [Concomitant]
     Indication: HAEMOGLOBIN DECREASED
     Dosage: 256 MG, QD
     Route: 048
     Dates: start: 20160526
  2. GODEX [Concomitant]
     Indication: ALANINE AMINOTRANSFERASE INCREASED
  3. AMARYL [Concomitant]
     Active Substance: GLIMEPIRIDE
     Indication: DIABETES MELLITUS
     Dosage: 2 MG, QD
     Route: 048
     Dates: start: 2015
  4. NOVOMIX 30 [Concomitant]
     Active Substance: INSULIN ASPART
     Indication: DIABETES MELLITUS
     Dosage: 20 U, PRN
     Route: 058
     Dates: start: 20160325
  5. GODEX [Concomitant]
     Indication: ASPARTATE AMINOTRANSFERASE INCREASED
     Dosage: 1 DF (CAPSULE), QD
     Route: 048
     Dates: start: 20160609
  6. URSA [Concomitant]
     Indication: ALANINE AMINOTRANSFERASE INCREASED
  7. TIROPA [Concomitant]
     Active Substance: TIROPRAMIDE
     Indication: ABDOMINAL PAIN
     Dosage: 100 MG, PRN
     Route: 065
     Dates: start: 20160501, end: 20160608
  8. LDK378 [Suspect]
     Active Substance: CERITINIB
     Indication: NON-SMALL CELL LUNG CANCER METASTATIC
     Dosage: 600 MG, UNK
     Route: 048
     Dates: start: 20160503, end: 20160608
  9. HUMALOG [Concomitant]
     Active Substance: INSULIN LISPRO
     Dosage: 4 U, PRN
     Route: 058
     Dates: start: 20160203
  10. GLUPA [Concomitant]
     Active Substance: METFORMIN HYDROCHLORIDE
     Indication: DIABETES MELLITUS
     Dosage: 500 MG, QD
     Route: 048
     Dates: start: 20160610
  11. URSA [Concomitant]
     Indication: ASPARTATE AMINOTRANSFERASE INCREASED
     Dosage: 1 DF (100 MG TABLET), QD
     Route: 048
     Dates: start: 20160609
  12. MORPHIN//MORPHINE SULFATE [Concomitant]
     Indication: ABDOMINAL PAIN
     Dosage: 3 MG, QD/PRN
     Route: 042
     Dates: start: 20160609, end: 20160610
  13. CODEIN [Concomitant]
     Active Substance: CODEINE
     Indication: COUGH
     Dosage: 20 MG, BID
     Route: 048
     Dates: start: 20160303

REACTIONS (1)
  - Lung infection [Recovered/Resolved]

NARRATIVE: CASE EVENT DATE: 20160607
